FAERS Safety Report 17137957 (Version 1)
Quarter: 2019Q4

REPORT INFORMATION
  Report Type: Report from Study
  Country: None (occurrence: CA)
  Receive Date: 20191211
  Receipt Date: 20191211
  Transmission Date: 20200122
  Serious: Yes (Other)
  Sender: FDA-Public Use
  Company Number: CA-ABBVIE-19K-028-3188712-00

PATIENT
  Sex: Male
  Weight: 88.53 kg

DRUGS (1)
  1. LUPRON DEPOT [Suspect]
     Active Substance: LEUPROLIDE ACETATE
     Indication: PROSTATE CANCER
     Route: 030
     Dates: start: 20170528

REACTIONS (2)
  - Metastases to spine [Not Recovered/Not Resolved]
  - Prostatic specific antigen increased [Not Recovered/Not Resolved]
